FAERS Safety Report 7282404-5 (Version None)
Quarter: 2011Q1

REPORT INFORMATION
  Report Type: 
  Country: None (occurrence: None)
  Receive Date: 20110209
  Receipt Date: 20110201
  Transmission Date: 20110831
  Serious: Yes (Other)
  Sender: FDA-Public Use
  Company Number: US-ASTELLAS-2011US000477

PATIENT

DRUGS (12)
  1. CELLCEPT [Concomitant]
     Indication: RENAL TRANSPLANT
     Dosage: 500 MG, BID
     Route: 048
     Dates: start: 20000612
  2. VALACICLOVIR [Concomitant]
     Indication: ANTIVIRAL TREATMENT
     Dosage: 500 MG, UID/QD
     Route: 048
     Dates: start: 20000612
  3. ASPIRIN [Concomitant]
     Indication: ANTICOAGULANT THERAPY
     Dosage: 81 MG, UID/QD
     Route: 048
  4. KLOR-CON M20 [Concomitant]
     Indication: BLOOD POTASSIUM
     Dosage: 1 DF, UID/QD
     Route: 048
  5. PREDNISONE [Concomitant]
     Indication: RENAL TRANSPLANT
     Dosage: 5 MG, UID/QD
     Route: 048
     Dates: start: 20110128
  6. ALLOPURINOL [Concomitant]
     Indication: GOUT
     Dosage: 100 MG, UID/QD
     Route: 048
  7. FUROSEMIDE [Concomitant]
     Indication: SWELLING
     Dosage: 80 MG, PRN
     Route: 048
     Dates: start: 20000612
  8. PROGRAF [Suspect]
     Indication: RENAL TRANSPLANT
     Dosage: 4 MG, BID
     Route: 048
     Dates: start: 20000612
  9. BENICAR [Concomitant]
     Indication: BLOOD PRESSURE
     Dosage: 20 MG, UID/QD
     Route: 048
     Dates: start: 20100201
  10. SULFAMETHOXAZOLE [Concomitant]
     Indication: ANTIBIOTIC THERAPY
     Dosage: 1 DF, 3XWEEKLY (MWF)
     Route: 048
     Dates: start: 19990101
  11. METOPROLOL TARTRATE [Concomitant]
     Indication: BLOOD PRESSURE
     Dosage: 50 MG, BID
     Route: 048
     Dates: start: 20100201
  12. SIMVASTATIN [Concomitant]
     Indication: BLOOD CHOLESTEROL
     Dosage: 10 MG, UID/QD
     Route: 048

REACTIONS (4)
  - RASH [None]
  - CARTILAGE INJURY [None]
  - SKIN MASS [None]
  - FALL [None]
